FAERS Safety Report 7480501-2 (Version None)
Quarter: 2011Q2

REPORT INFORMATION
  Report Type: 
  Country: None (occurrence: None)
  Receive Date: 20110505
  Receipt Date: 20110428
  Transmission Date: 20111010
  Serious: Yes (Death)
  Sender: FDA-Public Use
  Company Number: WAES 1104USA03922

PATIENT
  Age: 67 Year
  Sex: Male

DRUGS (8)
  1. HUMULIN R [Concomitant]
  2. CISPLATIN [Concomitant]
  3. HALOPERIDOL [Concomitant]
  4. ZOFRAN [Concomitant]
  5. DOXORUBICIN HYDROCHLORIDE [Concomitant]
  6. EMEND [Suspect]
     Indication: PROPHYLAXIS OF NAUSEA AND VOMITING
     Dosage: 125 MG/DAILY PO; 80 MG/DAILY PO
     Route: 048
     Dates: start: 20110325, end: 20110325
  7. EMEND [Suspect]
     Indication: PROPHYLAXIS OF NAUSEA AND VOMITING
     Dosage: 125 MG/DAILY PO; 80 MG/DAILY PO
     Route: 048
     Dates: start: 20110326, end: 20110327
  8. FLUOROURACIL [Concomitant]

REACTIONS (8)
  - HYPERBILIRUBINAEMIA [None]
  - FEBRILE NEUTROPENIA [None]
  - DISSEMINATED INTRAVASCULAR COAGULATION [None]
  - STEVENS-JOHNSON SYNDROME [None]
  - ACUTE RESPIRATORY DISTRESS SYNDROME [None]
  - WHITE BLOOD CELL COUNT DECREASED [None]
  - STOMATITIS [None]
  - PNEUMONIA [None]
